FAERS Safety Report 21462779 (Version 3)
Quarter: 2023Q1

REPORT INFORMATION
  Report Type: Report from Study
  Country: US (occurrence: US)
  Receive Date: 20221017
  Receipt Date: 20230307
  Transmission Date: 20230417
  Serious: Yes (Hospitalization, Other)
  Sender: FDA-Public Use
  Company Number: US-ABBVIE-22K-163-4304547-00

PATIENT
  Sex: Male

DRUGS (5)
  1. HUMIRA [Suspect]
     Active Substance: ADALIMUMAB
     Indication: Colitis ulcerative
     Dosage: 40 MG CF
     Route: 058
     Dates: start: 20210903
  2. HUMIRA [Suspect]
     Active Substance: ADALIMUMAB
     Dosage: 40 MG CF
     Route: 058
  3. JANSSEN COVID-19 VACCINE [Concomitant]
     Active Substance: AD26.COV2.S
     Indication: COVID-19 immunisation
     Dosage: FIRST DOSE?ONE IN ONCE
     Route: 030
     Dates: start: 20210527, end: 20210527
  4. JANSSEN COVID-19 VACCINE [Concomitant]
     Active Substance: AD26.COV2.S
     Indication: COVID-19 immunisation
     Dosage: SECOND DOSE?ONE IN ONCE
     Route: 030
  5. MODERNA COVID-19 VACCINE [Concomitant]
     Active Substance: ELASOMERAN
     Indication: COVID-19 immunisation
     Dosage: BOOSTER DOSE?ONE IN ONCE
     Route: 030
     Dates: start: 20220504, end: 20220504

REACTIONS (15)
  - Craniotomy [Unknown]
  - Cerebrovascular accident [Recovering/Resolving]
  - Visual impairment [Unknown]
  - Depression [Unknown]
  - Eye disorder [Unknown]
  - COVID-19 [Recovering/Resolving]
  - Mucous stools [Unknown]
  - Musculoskeletal disorder [Unknown]
  - Bradykinesia [Unknown]
  - Constipation [Unknown]
  - Defaecation urgency [Unknown]
  - Thrombosis [Unknown]
  - Anxiety [Unknown]
  - Gout [Unknown]
  - Neuralgia [Unknown]

NARRATIVE: CASE EVENT DATE: 20220101
